FAERS Safety Report 4366306-X (Version None)
Quarter: 2004Q2

REPORT INFORMATION
  Report Type: 
  Country: None (occurrence: None)
  Receive Date: 20040524
  Receipt Date: 20040419
  Transmission Date: 20050107
  Serious: No
  Sender: FDA-Public Use
  Company Number: SU-2003-001496

PATIENT
  Age: 79 Year
  Sex: Female
  Weight: 76.2043 kg

DRUGS (9)
  1. BENICAR [Suspect]
     Indication: HYPERTENSION
     Dosage: 20 MG QD PO
     Route: 048
     Dates: start: 20030515, end: 20030602
  2. BENICAR [Suspect]
     Indication: HYPERTENSION
     Dosage: 20 MG QD PO
     Route: 048
     Dates: start: 20040412, end: 20040419
  3. SYNTHROID [Concomitant]
  4. TRENTAL [Concomitant]
  5. MAXZIDE [Concomitant]
  6. NORVASC [Concomitant]
  7. LIPITOR [Concomitant]
  8. POTASSIUM [Concomitant]
  9. ASPIRIN [Concomitant]

REACTIONS (1)
  - BLOOD CREATININE INCREASED [None]
